FAERS Safety Report 4454320-5 (Version None)
Quarter: 2004Q3

REPORT INFORMATION
  Report Type: 
  Country: None (occurrence: None)
  Receive Date: 20040916
  Receipt Date: 20040901
  Transmission Date: 20050211
  Serious: Yes (Hospitalization)
  Sender: FDA-Public Use
  Company Number: A0524300A

PATIENT
  Age: 43 Year
  Sex: Male

DRUGS (4)
  1. NICORETTE [Suspect]
     Indication: EX-SMOKER
     Dosage: 2 MG/PER DAY/TRANSBUCCAL
     Dates: start: 19860101
  2. REPAGLINIDE [Concomitant]
  3. HUMAN INSULIN [Concomitant]
  4. INSULIN LISPRO [Concomitant]

REACTIONS (5)
  - BLOOD CHOLESTEROL INCREASED [None]
  - BLOOD GLUCOSE INCREASED [None]
  - CORONARY ARTERY SURGERY [None]
  - HYPERTENSION [None]
  - THROAT CANCER [None]
